FAERS Safety Report 20865935 (Version 2)
Quarter: 2022Q2

REPORT INFORMATION
  Report Type: Spontaneous
  Country: DE (occurrence: DE)
  Receive Date: 20220524
  Receipt Date: 20220609
  Transmission Date: 20220720
  Serious: Yes (Other)
  Sender: FDA-Public Use
  Company Number: DE-TEVA-2022-DE-2039992

PATIENT
  Age: 58 Year
  Sex: Male

DRUGS (12)
  1. LINEZOLID [Suspect]
     Active Substance: LINEZOLID
     Indication: Enterococcal infection
     Dosage: 1200 MILLIGRAM DAILY;
     Route: 042
  2. DAPTOMYCIN [Suspect]
     Active Substance: DAPTOMYCIN
     Indication: Enterococcal infection
     Dosage: 700 MILLIGRAM DAILY;
     Route: 042
  3. MEROPENEM [Suspect]
     Active Substance: MEROPENEM
     Indication: Enterobacter infection
     Dosage: 2G INITIAL BOLUS FOLLOWED BY 2G EVERY 8 HOURS
     Route: 041
  4. MEROPENEM [Suspect]
     Active Substance: MEROPENEM
     Indication: Klebsiella infection
     Dosage: 6 GRAM DAILY;
     Route: 041
  5. COLISTIN [Suspect]
     Active Substance: COLISTIN
     Indication: Enterobacter infection
     Dosage: 9MIO LOADING DOSE
     Route: 042
  6. COLISTIN [Suspect]
     Active Substance: COLISTIN
     Indication: Klebsiella infection
     Dosage: 2.5MIO EVERY 12 HOURS FOR 3 DAYS
     Route: 042
  7. COLISTIN [Suspect]
     Active Substance: COLISTIN
     Dosage: 4.5MIO EVERY 12 HOURS FOR ANOTHER 3 DAYS.
     Route: 042
  8. CEFIDEROCOL [Suspect]
     Active Substance: CEFIDEROCOL
     Indication: Enterococcal infection
     Dosage: INITIAL BOLUS
     Route: 042
  9. CEFIDEROCOL [Suspect]
     Active Substance: CEFIDEROCOL
     Dosage: 3 GRAM DAILY;
     Route: 042
  10. CEFIDEROCOL [Suspect]
     Active Substance: CEFIDEROCOL
     Dosage: 6 GRAM DAILY;
     Route: 042
  11. CASPOFUNGIN [Concomitant]
     Active Substance: CASPOFUNGIN
     Indication: Candida infection
     Dosage: IV 70 MG ON THE FIRST DAY
     Route: 042
  12. CASPOFUNGIN [Concomitant]
     Active Substance: CASPOFUNGIN
     Dosage: 50 MILLIGRAM DAILY;
     Route: 042

REACTIONS (3)
  - Nervous system disorder [Unknown]
  - Drug resistance [Unknown]
  - Drug ineffective [Unknown]
